FAERS Safety Report 14465003 (Version 4)
Quarter: 2021Q1

REPORT INFORMATION
  Report Type: Other
  Country: US (occurrence: US)
  Receive Date: 20180130
  Receipt Date: 20210125
  Transmission Date: 20210419
  Serious: No
  Sender: FDA-Public Use
  Company Number: US-ACORDA-ACO_136495_2017

PATIENT
  Age: 31 Year
  Sex: Male

DRUGS (14)
  1. AMPYRA [Suspect]
     Active Substance: DALFAMPRIDINE
     Indication: MULTIPLE SCLEROSIS
     Dosage: 10 MG, BID
     Route: 048
     Dates: start: 20150105
  2. AMPYRA [Suspect]
     Active Substance: DALFAMPRIDINE
     Dosage: 10 MG, BID  (EVERY 12 HOURS)
     Route: 048
     Dates: start: 20150117
  3. AMPYRA [Suspect]
     Active Substance: DALFAMPRIDINE
     Dosage: 10 MG, Q 12 HRS
     Route: 048
     Dates: start: 20150117
  4. TYSABRI [Suspect]
     Active Substance: NATALIZUMAB
     Indication: MULTIPLE SCLEROSIS
     Dosage: UNK
     Route: 042
     Dates: start: 20110812
  5. VITAMIN A [Concomitant]
     Active Substance: VITAMIN A
     Indication: PRODUCT USED FOR UNKNOWN INDICATION
     Route: 065
  6. VITAMIN C [Concomitant]
     Active Substance: ASCORBIC ACID
     Indication: PRODUCT USED FOR UNKNOWN INDICATION
     Route: 065
  7. ADVAIR HFA [Concomitant]
     Active Substance: FLUTICASONE PROPIONATE\SALMETEROL XINAFOATE
     Indication: PRODUCT USED FOR UNKNOWN INDICATION
     Route: 065
  8. LORATADINE. [Concomitant]
     Active Substance: LORATADINE
     Indication: PRODUCT USED FOR UNKNOWN INDICATION
     Dosage: UNK
     Route: 065
  9. RISPERIDONE. [Concomitant]
     Active Substance: RISPERIDONE
     Indication: PRODUCT USED FOR UNKNOWN INDICATION
     Dosage: UNK
     Route: 065
  10. AMPYRA [Suspect]
     Active Substance: DALFAMPRIDINE
     Dosage: 10 MILLIGRAM
     Route: 048
  11. ZOLPIDEM [Concomitant]
     Active Substance: ZOLPIDEM TARTRATE
     Indication: PRODUCT USED FOR UNKNOWN INDICATION
     Dosage: UNK
     Route: 065
  12. DIVALPROEX SODIUM. [Concomitant]
     Active Substance: DIVALPROEX SODIUM
     Indication: PRODUCT USED FOR UNKNOWN INDICATION
     Dosage: UNK
     Route: 065
  13. AMPYRA [Suspect]
     Active Substance: DALFAMPRIDINE
     Dosage: 10 MILLIGRAM, BID
     Route: 065
  14. ALBUTEROL. [Concomitant]
     Active Substance: ALBUTEROL
     Indication: PRODUCT USED FOR UNKNOWN INDICATION
     Route: 065

REACTIONS (10)
  - Fall [Recovering/Resolving]
  - Fatigue [Unknown]
  - Limb discomfort [Not Recovered/Not Resolved]
  - Condition aggravated [Recovering/Resolving]
  - Fall [Unknown]
  - Skin abrasion [Recovering/Resolving]
  - Mobility decreased [Unknown]
  - Mobility decreased [Recovered/Resolved]
  - Contusion [Recovering/Resolving]
  - Arthralgia [Not Recovered/Not Resolved]

NARRATIVE: CASE EVENT DATE: 201703
